FAERS Safety Report 9745335 (Version 3)
Quarter: 2013Q4

REPORT INFORMATION
  Report Type: Report from Study
  Country: US (occurrence: US)
  Receive Date: 20131211
  Receipt Date: 20131227
  Transmission Date: 20140711
  Serious: Yes (Hospitalization, Other)
  Sender: FDA-Public Use
  Company Number: US-ROCHE-1316199

PATIENT
  Age: 67 Year
  Sex: Female
  Weight: 59.9 kg

DRUGS (16)
  1. RITUXIMAB [Suspect]
     Indication: CHRONIC LYMPHOCYTIC LEUKAEMIA
     Dosage: EVERY 1-2 WEEKS
     Route: 042
     Dates: start: 20130904, end: 20131018
  2. RITUXIMAB [Suspect]
     Route: 042
     Dates: start: 20131018, end: 20131118
  3. VINCRISTINE [Suspect]
     Indication: CHRONIC LYMPHOCYTIC LEUKAEMIA
     Route: 042
     Dates: start: 20130904, end: 20131004
  4. FLUDARA [Suspect]
     Indication: CHRONIC LYMPHOCYTIC LEUKAEMIA
     Route: 042
     Dates: start: 20131016, end: 20131120
  5. ARICEPT [Concomitant]
     Route: 065
  6. CLOBETASOL [Concomitant]
  7. DILTIAZEM [Concomitant]
     Route: 065
  8. ECOTRIN [Concomitant]
     Route: 065
  9. HYDROCHLOROTHIAZIDE [Concomitant]
     Route: 065
  10. IMODIUM [Concomitant]
     Route: 065
  11. LIPITOR [Concomitant]
     Route: 065
  12. LISINOPRIL [Concomitant]
     Route: 065
  13. NEXIUM [Concomitant]
     Route: 065
  14. PREMARIN [Concomitant]
     Route: 065
  15. SUCRALFATE [Concomitant]
     Route: 065
  16. VALTREX [Concomitant]
     Route: 065

REACTIONS (7)
  - Febrile neutropenia [Recovered/Resolved]
  - Dehydration [Recovered/Resolved]
  - Pancytopenia [Recovering/Resolving]
  - Nausea [Recovered/Resolved]
  - Vomiting [Not Recovered/Not Resolved]
  - Colitis [Recovered/Resolved]
  - Headache [Recovered/Resolved]
